FAERS Safety Report 5809060-4 (Version None)
Quarter: 2008Q3

REPORT INFORMATION
  Report Type: 
  Country: None (occurrence: None)
  Receive Date: 20080711
  Receipt Date: 20080711
  Transmission Date: 20090109
  Serious: Yes (Other)
  Sender: FDA-Public Use
  Company Number: None

PATIENT
  Sex: Male
  Weight: 52.1637 kg

DRUGS (1)
  1. OXCARBAZEPINE [Suspect]
     Indication: EPILEPSY
     Dosage: 300 MG 1 1/2 TAB BID PO
     Route: 048
     Dates: start: 20071101, end: 20080501

REACTIONS (3)
  - CONVULSION [None]
  - EPILEPSY [None]
  - PHARMACEUTICAL PRODUCT COMPLAINT [None]
